FAERS Safety Report 5076359-1 (Version None)
Quarter: 2006Q3

REPORT INFORMATION
  Report Type: 
  Country: None (occurrence: None)
  Receive Date: 20060807
  Receipt Date: 20060728
  Transmission Date: 20061208
  Serious: Yes (Other)
  Sender: FDA-Public Use
  Company Number: CHNY2006JP02089

PATIENT
  Age: 39 Year
  Sex: Male

DRUGS (2)
  1. NICOTINE [Suspect]
     Indication: SMOKING CESSATION THERAPY
     Dosage: 14 MG, QD, TRANSDERMAL; SEE IMAGE
     Route: 062
     Dates: start: 20060706, end: 20060712
  2. NICOTINE [Suspect]
     Indication: SMOKING CESSATION THERAPY
     Dosage: 14 MG, QD, TRANSDERMAL; SEE IMAGE
     Route: 062
     Dates: start: 20060713

REACTIONS (1)
  - ANGIONEUROTIC OEDEMA [None]
